FAERS Safety Report 9778674 (Version 2)
Quarter: 2014Q1

REPORT INFORMATION
  Report Type: Spontaneous
  Country: FR (occurrence: FR)
  Receive Date: 20131223
  Receipt Date: 20140131
  Transmission Date: 20141002
  Serious: Yes (Other)
  Sender: FDA-Public Use
  Company Number: FR-NAPPMUNDI-GBR-2013-0016705

PATIENT
  Age: 77 Year
  Sex: Female

DRUGS (4)
  1. OXYCONTIN LP, COMPRIME PELLICULE A LIBERATION PROLONGEE [Suspect]
     Indication: BACK PAIN
     Dosage: 10 MG, TID
  2. OXYCONTIN LP, COMPRIME PELLICULE A LIBERATION PROLONGEE [Suspect]
     Dosage: 30 MG, AM
     Route: 048
  3. OXYCONTIN LP, COMPRIME PELLICULE A LIBERATION PROLONGEE [Suspect]
     Dosage: 20 MG, NOCTE
     Route: 048
  4. MACROGOL [Concomitant]

REACTIONS (3)
  - Drug withdrawal syndrome [Recovered/Resolved]
  - Medication residue present [Recovered/Resolved]
  - Medication residue present [Recovered/Resolved]
